FAERS Safety Report 5997340-1 (Version None)
Quarter: 2008Q4

REPORT INFORMATION
  Report Type: 
  Country: None (occurrence: None)
  Receive Date: 20081210
  Receipt Date: 20081126
  Transmission Date: 20090506
  Serious: Yes (Hospitalization)
  Sender: FDA-Public Use
  Company Number: B0549237A

PATIENT
  Age: 56 Year
  Sex: Female

DRUGS (8)
  1. PAROXETINE HYDROCHLORIDE (FORMULATION UNKNOWN) (GENERIC) [Suspect]
  2. THYROXINE SODIUM (FORMULATION UNKNOWN) (GENERIC) [Suspect]
  3. NIMESULIDE (FORMULATION UNKNOWN) (NIMESULIDE) [Suspect]
  4. GABAPENTIN [Suspect]
  5. AMITRIPTYLINE (FORMULATION UNKNOWN) (AMITRIPTYLINE) [Suspect]
  6. TRAMADOL HYDROCHLORIDE (FORMULATION UNKNOWN) [Suspect]
  7. BENDROFLUAZIDE (FORMULATION UNKNOWN) [Suspect]
  8. AMLODIPINE (FORMULATION UNKNOWN) [Suspect]

REACTIONS (4)
  - ACUTE HEPATIC FAILURE [None]
  - HEPATIC ENCEPHALOPATHY [None]
  - HEPATOTOXICITY [None]
  - LIVER TRANSPLANT [None]
